FAERS Safety Report 8472369-2 (Version None)
Quarter: 2012Q2

REPORT INFORMATION
  Report Type: 
  Country: None (occurrence: None)
  Receive Date: 20120627
  Receipt Date: 20120619
  Transmission Date: 20120825
  Serious: Yes (Hospitalization)
  Sender: FDA-Public Use
  Company Number: US-ACTELION-A-US2011-59676

PATIENT

DRUGS (5)
  1. TIKOSYN [Concomitant]
  2. REVATIO [Concomitant]
  3. TRACLEER [Suspect]
     Indication: PULMONARY ARTERIAL HYPERTENSION
     Dosage: UNK
     Route: 048
     Dates: start: 20040525
  4. COUMADIN [Concomitant]
  5. FLOLAN [Concomitant]

REACTIONS (4)
  - FLUID RETENTION [None]
  - CONDITION AGGRAVATED [None]
  - PULMONARY HYPERTENSION [None]
  - ASCITES [None]
